FAERS Safety Report 4402374-4 (Version None)
Quarter: 2004Q3

REPORT INFORMATION
  Report Type: 
  Country: None (occurrence: None)
  Receive Date: 20040715
  Receipt Date: 20040123
  Transmission Date: 20050211
  Serious: Yes (Other)
  Sender: FDA-Public Use
  Company Number: 6912

PATIENT
  Sex: Female

DRUGS (1)
  1. SEPTOCAINE [Suspect]
     Indication: LOCAL ANAESTHESIA
     Dosage: MANDIBULAR INJECTION (1 CARTRIDGE)

REACTIONS (2)
  - HYPOAESTHESIA [None]
  - HYPOAESTHESIA ORAL [None]
